FAERS Safety Report 11837187 (Version 1)
Quarter: 2015Q4

REPORT INFORMATION
  Report Type: Spontaneous
  Country: US (occurrence: US)
  Receive Date: 20151215
  Receipt Date: 20151215
  Transmission Date: 20160305
  Serious: No
  Sender: FDA-Public Use
  Company Number: US-PFIZER INC-2015398459

PATIENT
  Age: 87 Year
  Sex: Female
  Weight: 73.92 kg

DRUGS (1)
  1. SUTENT [Suspect]
     Active Substance: SUNITINIB MALATE
     Indication: GASTRIC CANCER
     Dosage: 50 MG, DAILY
     Route: 048
     Dates: start: 20150930

REACTIONS (1)
  - Peripheral swelling [Unknown]
